FAERS Safety Report 12840366 (Version 4)
Quarter: 2017Q3

REPORT INFORMATION
  Report Type: Report from Study
  Country: CN (occurrence: CN)
  Receive Date: 20161012
  Receipt Date: 20170707
  Transmission Date: 20171127
  Serious: Yes (Other)
  Sender: FDA-Public Use
  Company Number: PHHY2016CN140327

PATIENT
  Age: 26 Year
  Sex: Male
  Weight: 57 kg

DRUGS (34)
  1. AMCAL CALCIUM + VITAMIN D [Concomitant]
     Indication: BONE LOSS
     Dosage: UNK
     Route: 065
  2. MYFORTIC [Suspect]
     Active Substance: MYCOPHENOLATE SODIUM
     Dosage: 1080 MG, UNK
     Route: 048
     Dates: start: 20160312, end: 20160327
  3. TACROLIMUS. [Concomitant]
     Active Substance: TACROLIMUS
     Indication: RENAL TRANSPLANT
     Dosage: 10 MG, UNK
     Route: 065
     Dates: start: 20160307
  4. TACROLIMUS. [Concomitant]
     Active Substance: TACROLIMUS
     Dosage: 2.5 UNK, UNK
     Route: 065
     Dates: start: 20160309
  5. TACROLIMUS. [Concomitant]
     Active Substance: TACROLIMUS
     Dosage: 6 MG, UNK
     Route: 065
     Dates: start: 20160315
  6. TACROLIMUS. [Concomitant]
     Active Substance: TACROLIMUS
     Dosage: 5.5 MG, UNK
     Route: 065
     Dates: start: 20160316, end: 20160320
  7. METHYLPREDNISOLONE. [Concomitant]
     Active Substance: METHYLPREDNISOLONE
     Dosage: 16 MG, UNK
     Route: 065
     Dates: start: 20160316
  8. METHYLPREDNISOLONE. [Concomitant]
     Active Substance: METHYLPREDNISOLONE
     Dosage: 12 MG, UNK
     Route: 065
     Dates: start: 20160317
  9. METHYLPREDNISOLONE. [Concomitant]
     Active Substance: METHYLPREDNISOLONE
     Dosage: 104 MG, UNK
     Route: 065
     Dates: start: 20160314
  10. METHYLPREDNISOLONE. [Concomitant]
     Active Substance: METHYLPREDNISOLONE
     Dosage: 8 MG, UNK
     Route: 065
     Dates: start: 20160318
  11. MMF [Concomitant]
     Active Substance: MYCOPHENOLATE MOFETIL
     Indication: RENAL TRANSPLANT
     Dosage: 1 G, UNK
     Route: 065
     Dates: start: 20160308, end: 20160311
  12. MYFORTIC [Suspect]
     Active Substance: MYCOPHENOLATE SODIUM
     Indication: IMMUNOSUPPRESSANT DRUG THERAPY
     Dosage: 540 MG, UNK
     Route: 048
     Dates: start: 20160308
  13. MYFORTIC [Suspect]
     Active Substance: MYCOPHENOLATE SODIUM
     Dosage: 720 MG, UNK
     Route: 048
     Dates: start: 20160405, end: 20160410
  14. TACROLIMUS. [Concomitant]
     Active Substance: TACROLIMUS
     Dosage: 7.5 MG, UNK
     Route: 065
     Dates: start: 20160310, end: 20160311
  15. METHYLPREDNISOLONE. [Concomitant]
     Active Substance: METHYLPREDNISOLONE
     Dosage: 20 MG, UNK
     Route: 065
     Dates: start: 20160315
  16. MMF [Concomitant]
     Active Substance: MYCOPHENOLATE MOFETIL
     Dosage: 2 G, UNK
     Route: 065
     Dates: start: 20160309, end: 20160310
  17. MYFORTIC [Suspect]
     Active Substance: MYCOPHENOLATE SODIUM
     Dosage: 900 MG, UNK
     Route: 048
     Dates: start: 20160328, end: 20160404
  18. MYFORTIC [Suspect]
     Active Substance: MYCOPHENOLATE SODIUM
     Dosage: 900 MG, UNK
     Route: 048
     Dates: start: 20160802
  19. TACROLIMUS. [Concomitant]
     Active Substance: TACROLIMUS
     Dosage: 5 MG, UNK
     Route: 065
     Dates: start: 20160321, end: 20160324
  20. METHYLPREDNISOLONE. [Concomitant]
     Active Substance: METHYLPREDNISOLONE
     Dosage: 750 MG, UNK
     Route: 065
     Dates: start: 20160309
  21. MYFORTIC [Suspect]
     Active Substance: MYCOPHENOLATE SODIUM
     Dosage: 540 MG, UNK
     Route: 048
     Dates: start: 20160311
  22. TACROLIMUS. [Concomitant]
     Active Substance: TACROLIMUS
     Dosage: 6.5 MG, UNK
     Route: 065
     Dates: start: 20160313, end: 20160314
  23. TACROLIMUS. [Concomitant]
     Active Substance: TACROLIMUS
     Dosage: 5 MG, UNK
     Route: 065
     Dates: start: 20160326, end: 20160328
  24. MYFORTIC [Suspect]
     Active Substance: MYCOPHENOLATE SODIUM
     Indication: RENAL TRANSPLANT
     Dosage: 1080 MG, UNK
     Route: 048
     Dates: start: 20160307
  25. TACROLIMUS. [Concomitant]
     Active Substance: TACROLIMUS
     Dosage: 4.5 MG, UNK
     Route: 065
     Dates: start: 20160327
  26. METHYLPREDNISOLONE. [Concomitant]
     Active Substance: METHYLPREDNISOLONE
     Dosage: 500 MG, UNK
     Route: 065
     Dates: start: 20160310, end: 20160311
  27. TACROLIMUS. [Concomitant]
     Active Substance: TACROLIMUS
     Dosage: 5 MG, UNK
     Route: 065
     Dates: start: 20160308
  28. TACROLIMUS. [Concomitant]
     Active Substance: TACROLIMUS
     Dosage: 4.5 MG, UNK
     Route: 065
     Dates: start: 20160325
  29. METHYLPREDNISOLONE. [Concomitant]
     Active Substance: METHYLPREDNISOLONE
     Dosage: 108 MG, UNK
     Route: 065
     Dates: start: 20160313
  30. TACROLIMUS. [Concomitant]
     Active Substance: TACROLIMUS
     Dosage: 7 MG, UNK
     Route: 065
     Dates: start: 20160312
  31. TACROLIMUS. [Concomitant]
     Active Substance: TACROLIMUS
     Dosage: 4.5 MG, UNK
     Route: 065
     Dates: start: 20160329
  32. CALCITONIN [Concomitant]
     Active Substance: CALCITONIN
     Indication: BONE LOSS
     Dosage: UNK
     Route: 065
  33. METHYLPREDNISOLONE. [Concomitant]
     Active Substance: METHYLPREDNISOLONE
     Indication: RENAL TRANSPLANT
     Dosage: 810 MG, UNK
     Route: 065
     Dates: start: 20160307
  34. METHYLPREDNISOLONE. [Concomitant]
     Active Substance: METHYLPREDNISOLONE
     Dosage: 112 MG, UNK
     Route: 065
     Dates: start: 20160312

REACTIONS (13)
  - Red cell distribution width increased [Not Recovered/Not Resolved]
  - Myocardial ischaemia [Recovered/Resolved]
  - Upper respiratory tract infection [Recovered/Resolved]
  - Drug-induced liver injury [Recovered/Resolved]
  - Lymphocyte count increased [Recovered/Resolved]
  - Hypercalcaemia [Recovered/Resolved]
  - Eosinophil count decreased [Recovered/Resolved]
  - Haematocrit increased [Recovered/Resolved]
  - White blood cell count increased [Recovered/Resolved]
  - Urinary tract infection [Recovered/Resolved]
  - Hyperlipidaemia [Recovered/Resolved]
  - Monocyte count increased [Recovered/Resolved]
  - Platelet count increased [Recovered/Resolved]

NARRATIVE: CASE EVENT DATE: 20160313
